FAERS Safety Report 8297895-0 (Version None)
Quarter: 2012Q2

REPORT INFORMATION
  Report Type: 
  Country: None (occurrence: None)
  Receive Date: 20120419
  Receipt Date: 20120413
  Transmission Date: 20120825
  Serious: Yes (Other)
  Sender: FDA-Public Use
  Company Number: PHHY2011US69131

PATIENT
  Sex: Female
  Weight: 60.317 kg

DRUGS (2)
  1. GILENYA [Suspect]
     Indication: RELAPSING-REMITTING MULTIPLE SCLEROSIS
     Dosage: 0.5 MG, QD
     Route: 048
     Dates: start: 20110722
  2. GILENYA [Suspect]
     Dosage: 0.5 MG, QD
     Route: 048
     Dates: start: 20110701

REACTIONS (12)
  - MEMORY IMPAIRMENT [None]
  - HYPOAESTHESIA [None]
  - WEIGHT DECREASED [None]
  - PHOTOPHOBIA [None]
  - HEART RATE INCREASED [None]
  - FATIGUE [None]
  - GAIT DISTURBANCE [None]
  - CENTRAL NERVOUS SYSTEM LESION [None]
  - SOMNOLENCE [None]
  - MUSCULAR WEAKNESS [None]
  - HEADACHE [None]
  - DIVERTICULITIS [None]
